FAERS Safety Report 5574880-0 (Version None)
Quarter: 2007Q4

REPORT INFORMATION
  Report Type: 
  Country: None (occurrence: None)
  Receive Date: 20071227
  Receipt Date: 20071104
  Transmission Date: 20080405
  Serious: Yes (Disabling, Other)
  Sender: FDA-Public Use
  Company Number: US-PURDUE-USA_2007_0030810

PATIENT
  Sex: Female

DRUGS (1)
  1. OXYCONTIN [Suspect]
     Indication: BACK PAIN
     Dosage: UNK, UNK
     Dates: start: 19981201, end: 20010101

REACTIONS (6)
  - DEPRESSION [None]
  - DISORIENTATION [None]
  - DYSURIA [None]
  - HYPERTENSION [None]
  - PARALYSIS [None]
  - SOMNOLENCE [None]
